FAERS Safety Report 9476623 (Version 3)
Quarter: 2014Q1

REPORT INFORMATION
  Report Type: Spontaneous
  Country: GB (occurrence: GB)
  Receive Date: 20130826
  Receipt Date: 20140318
  Transmission Date: 20141002
  Serious: Yes (Other)
  Sender: FDA-Public Use
  Company Number: GB-SHIRE-ALL1-2013-05617

PATIENT
  Age: 27 Year
  Sex: Female

DRUGS (5)
  1. 476 (MESALAZINE/MESALAMINE) [Suspect]
     Indication: PRODUCT USED FOR UNKNOWN INDICATION
     Dosage: UNK UNK, UNKNOWN
     Route: 048
  2. HUMIRA [Suspect]
     Indication: CROHN^S DISEASE
     Dosage: 40 MG, 1X/WEEK
     Route: 058
     Dates: start: 201303, end: 201304
  3. HUMIRA [Suspect]
     Dosage: 40 MG, 1X/2WKS
     Route: 058
     Dates: start: 201210, end: 201212
  4. PENTASA [Concomitant]
     Indication: CROHN^S DISEASE
     Dosage: 1 G, 4X/DAY:QID
     Route: 048
     Dates: start: 2007, end: 201304
  5. MICROGYNON [Concomitant]
     Indication: PRODUCT USED FOR UNKNOWN INDICATION
     Dosage: 1 DF, 1X/DAY:QD
     Route: 048

REACTIONS (2)
  - Kidney fibrosis [Recovering/Resolving]
  - Renal impairment [Unknown]
